FAERS Safety Report 22010155 (Version 1)
Quarter: 2023Q1

REPORT INFORMATION
  Report Type: Spontaneous
  Country: ES (occurrence: ES)
  Receive Date: 20230220
  Receipt Date: 20230220
  Transmission Date: 20230418
  Serious: Yes (Hospitalization)
  Sender: FDA-Public Use
  Company Number: None

PATIENT
  Age: 16 Year
  Sex: Female

DRUGS (2)
  1. FLUDARABINE PHOSPHATE [Interacting]
     Active Substance: FLUDARABINE PHOSPHATE
     Indication: Acute myeloid leukaemia
     Dosage: FLUDARABINA (3698A),
     Route: 065
     Dates: start: 20220912, end: 20220917
  2. CYTARABINE [Interacting]
     Active Substance: CYTARABINE
     Indication: Acute myeloid leukaemia
     Dosage: CITARABINA (124A),
     Route: 065
     Dates: start: 20220912, end: 20220917

REACTIONS (2)
  - Pancytopenia [Recovering/Resolving]
  - Drug interaction [Unknown]

NARRATIVE: CASE EVENT DATE: 20220923
